FAERS Safety Report 20679450 (Version 1)
Quarter: 2022Q2

REPORT INFORMATION
  Report Type: Spontaneous
  Country: US (occurrence: US)
  Receive Date: 20220406
  Receipt Date: 20220406
  Transmission Date: 20220721
  Serious: No
  Sender: FDA-Public Use
  Company Number: US-BRISTOL-MYERS SQUIBB COMPANY-2022-012871

PATIENT
  Age: 81 Year
  Sex: Female

DRUGS (1)
  1. REVLIMID [Suspect]
     Active Substance: LENALIDOMIDE
     Indication: Lymphoma
     Dosage: 1 CAPSULE BY MOUTH ON DAYS 1-21 FOLLOWED BY 7 DAYS OFF EVERY 28 DAYS
     Route: 048

REACTIONS (2)
  - COVID-19 [Recovered/Resolved]
  - Diarrhoea [Recovered/Resolved]
